FAERS Safety Report 9130213 (Version 2)
Quarter: 2013Q2

REPORT INFORMATION
  Report Type: Spontaneous
  Country: US (occurrence: US)
  Receive Date: 20130228
  Receipt Date: 20130416
  Transmission Date: 20140414
  Serious: No
  Sender: FDA-Public Use
  Company Number: US-PFIZER INC-2013072067

PATIENT
  Age: 75 Year
  Sex: Male
  Weight: 106 kg

DRUGS (2)
  1. LYRICA [Suspect]
     Indication: DIABETIC NEUROPATHY
     Dosage: 50 MG, 3X/DAY
     Route: 048
     Dates: start: 201302
  2. METFORMIN [Concomitant]
     Indication: DIABETES MELLITUS
     Dosage: 2400 MG, 1X/DAY

REACTIONS (1)
  - Drug ineffective [Unknown]
